FAERS Safety Report 17768768 (Version 1)
Quarter: 2020Q2

REPORT INFORMATION
  Report Type: Spontaneous
  Country: ES (occurrence: ES)
  Receive Date: 20200512
  Receipt Date: 20200512
  Transmission Date: 20200714
  Serious: Yes (Other)
  Sender: FDA-Public Use
  Company Number: ES-SA-2020SA116045

PATIENT
  Age: 57 Year
  Sex: Female

DRUGS (6)
  1. CALCIFEDIOL [Concomitant]
     Active Substance: CALCIFEDIOL
  2. METHOTREXATE. [Concomitant]
     Active Substance: METHOTREXATE
     Dosage: 15 MG, QW
  3. PREDNISONE. [Concomitant]
     Active Substance: PREDNISONE
     Dosage: 5 MG, QD
  4. BARICITINIB [Concomitant]
     Active Substance: BARICITINIB
     Dosage: 4.5 MG, QD
  5. LEFLUNOMIDE. [Suspect]
     Active Substance: LEFLUNOMIDE
     Dosage: 20 MG, QD
     Route: 065
  6. LEDERFOLIN [Concomitant]
     Active Substance: LEUCOVORIN CALCIUM
     Dosage: UNK
     Route: 065

REACTIONS (4)
  - Hypogammaglobulinaemia [Recovered/Resolved]
  - Rash pruritic [Recovered/Resolved]
  - Infection [Recovered/Resolved]
  - Localised infection [Recovered/Resolved]
